FAERS Safety Report 19583331 (Version 2)
Quarter: 2022Q4

REPORT INFORMATION
  Report Type: Report from Study
  Country: US (occurrence: US)
  Receive Date: 20210720
  Receipt Date: 20221021
  Transmission Date: 20230113
  Serious: No
  Sender: FDA-Public Use
  Company Number: US-TAKEDA-2021TUS042892

PATIENT
  Age: 43 Year
  Sex: Female

DRUGS (83)
  1. TEDUGLUTIDE [Suspect]
     Active Substance: TEDUGLUTIDE
     Indication: Short-bowel syndrome
     Dosage: 3.9 MILLIGRAM, QD
     Route: 042
     Dates: start: 20150601, end: 20160608
  2. TEDUGLUTIDE [Suspect]
     Active Substance: TEDUGLUTIDE
     Indication: Short-bowel syndrome
     Dosage: 3.9 MILLIGRAM, QD
     Route: 042
     Dates: start: 20150601, end: 20160608
  3. TEDUGLUTIDE [Suspect]
     Active Substance: TEDUGLUTIDE
     Indication: Short-bowel syndrome
     Dosage: 3.9 MILLIGRAM, QD
     Route: 042
     Dates: start: 20150601, end: 20160608
  4. TEDUGLUTIDE [Suspect]
     Active Substance: TEDUGLUTIDE
     Indication: Short-bowel syndrome
     Dosage: 3.9 MILLIGRAM, QD
     Route: 042
     Dates: start: 20150601, end: 20160608
  5. TEDUGLUTIDE [Suspect]
     Active Substance: TEDUGLUTIDE
     Dosage: 3.8 MILLIGRAM, QD
     Route: 042
     Dates: start: 20170801
  6. TEDUGLUTIDE [Suspect]
     Active Substance: TEDUGLUTIDE
     Dosage: 3.8 MILLIGRAM, QD
     Route: 042
     Dates: start: 20170801
  7. TEDUGLUTIDE [Suspect]
     Active Substance: TEDUGLUTIDE
     Dosage: 3.8 MILLIGRAM, QD
     Route: 042
     Dates: start: 20170801
  8. TEDUGLUTIDE [Suspect]
     Active Substance: TEDUGLUTIDE
     Dosage: 3.8 MILLIGRAM, QD
     Route: 042
     Dates: start: 20170801
  9. VITAMINS [Concomitant]
     Active Substance: VITAMINS
     Indication: Product used for unknown indication
     Dosage: 1 DOSAGE FORM, BID
     Route: 048
     Dates: start: 20170717
  10. TRIAMCINOLONE [Concomitant]
     Active Substance: TRIAMCINOLONE
     Indication: Product used for unknown indication
     Dosage: 1 APPLICATION, PRN
     Route: 061
     Dates: start: 20210205
  11. IOPAMIDOL [Concomitant]
     Active Substance: IOPAMIDOL
     Indication: Product used for unknown indication
     Dosage: 150 MILLILITER, ONCE
     Route: 042
     Dates: start: 20200624, end: 20200624
  12. IOPAMIDOL [Concomitant]
     Active Substance: IOPAMIDOL
     Dosage: 150 MILLILITER, ONCE
     Route: 042
     Dates: start: 20200117, end: 20200117
  13. ACETAMINOPHEN [Concomitant]
     Active Substance: ACETAMINOPHEN
     Indication: Pain
     Dosage: 650 MILLIGRAM, ONCE
     Route: 048
     Dates: start: 20200616, end: 20200616
  14. ACETAMINOPHEN [Concomitant]
     Active Substance: ACETAMINOPHEN
     Dosage: 10 MILLIGRAM/KILOGRAM, QID
     Route: 048
     Dates: start: 20180507, end: 20180521
  15. ACETAMINOPHEN [Concomitant]
     Active Substance: ACETAMINOPHEN
     Dosage: 640 MILLIGRAM, QID
     Route: 048
     Dates: start: 20180601, end: 20180604
  16. ACETAMINOPHEN [Concomitant]
     Active Substance: ACETAMINOPHEN
     Dosage: 20 MILLILITER, QID
     Route: 048
     Dates: start: 20180601, end: 20180604
  17. ACETAMINOPHEN [Concomitant]
     Active Substance: ACETAMINOPHEN
     Dosage: 650 MILLIGRAM, SINGLE
     Route: 048
     Dates: start: 20200205, end: 20200205
  18. VEDOLIZUMAB [Concomitant]
     Active Substance: VEDOLIZUMAB
     Indication: Crohn^s disease
     Dosage: 300 MILLIGRAM
     Route: 042
     Dates: start: 20170111
  19. FAMOTIDINE [Concomitant]
     Active Substance: FAMOTIDINE
     Indication: Prophylaxis
     Dosage: 20 MILLIGRAM, BID
     Route: 048
     Dates: start: 20181030, end: 20181129
  20. FAMOTIDINE [Concomitant]
     Active Substance: FAMOTIDINE
     Indication: Gastrooesophageal reflux disease
     Dosage: 20 MILLIGRAM, SINGLE
     Route: 042
     Dates: start: 20180415, end: 20180415
  21. FAMOTIDINE [Concomitant]
     Active Substance: FAMOTIDINE
     Dosage: 20 UNK
     Route: 042
     Dates: start: 20200205, end: 20200205
  22. HYDROCORTISONE ENEMA [Concomitant]
     Indication: Rectal haemorrhage
     Dosage: 100 MILLIGRAM, QD
     Route: 054
     Dates: start: 20190220, end: 20190313
  23. MIDAZOLAM [Concomitant]
     Active Substance: MIDAZOLAM
     Indication: Feeling of relaxation
     Dosage: UNK
     Route: 042
     Dates: start: 20171231, end: 20171231
  24. MIDAZOLAM [Concomitant]
     Active Substance: MIDAZOLAM
     Dosage: 5 MILLIGRAM, SINGLE
     Route: 042
     Dates: start: 20180507, end: 20180507
  25. MIDAZOLAM [Concomitant]
     Active Substance: MIDAZOLAM
     Dosage: 1 MILLIGRAM, SINGLE
     Route: 042
     Dates: start: 20171231, end: 20171231
  26. MIDAZOLAM [Concomitant]
     Active Substance: MIDAZOLAM
     Dosage: 1 MILLIGRAM, SINGLE
     Route: 042
     Dates: start: 20180507, end: 20180507
  27. FENTANYL [Concomitant]
     Active Substance: FENTANYL
     Indication: Analgesic therapy
     Dosage: UNK
     Route: 042
     Dates: start: 20171231, end: 20171231
  28. FENTANYL [Concomitant]
     Active Substance: FENTANYL
     Dosage: 50 MICROGRAM, SINGLE
     Route: 042
     Dates: start: 20180507, end: 20180507
  29. FENTANYL [Concomitant]
     Active Substance: FENTANYL
     Dosage: 50 MICROGRAM, SINGLE
     Route: 042
     Dates: start: 20171231, end: 20171231
  30. FENTANYL [Concomitant]
     Active Substance: FENTANYL
     Dosage: 100 MICROGRAM, SINGLE
     Route: 042
     Dates: start: 20180507, end: 20180507
  31. SODIUM CHLORIDE [Concomitant]
     Active Substance: SODIUM CHLORIDE
     Indication: Fluid replacement
     Dosage: 100 MILLILITER, SINGLE
     Route: 042
     Dates: start: 20180227, end: 20180227
  32. SODIUM CHLORIDE [Concomitant]
     Active Substance: SODIUM CHLORIDE
     Dosage: 4 MILLILITER, SINGLE
     Route: 008
     Dates: start: 20180413, end: 20180413
  33. SODIUM CHLORIDE [Concomitant]
     Active Substance: SODIUM CHLORIDE
     Dosage: 1000 MILLIGRAM
     Route: 042
     Dates: start: 20180504, end: 20180504
  34. SODIUM CHLORIDE [Concomitant]
     Active Substance: SODIUM CHLORIDE
     Dosage: 1000 MILLIGRAM
     Route: 042
     Dates: start: 20180531, end: 20180531
  35. SODIUM CHLORIDE [Concomitant]
     Active Substance: SODIUM CHLORIDE
     Dosage: 250 MILLILITER, SINGLE
     Route: 042
     Dates: start: 20200616, end: 20200616
  36. ONDANSETRON [Concomitant]
     Active Substance: ONDANSETRON
     Indication: Nausea
     Dosage: 4 MILLIGRAM, TID
     Route: 042
     Dates: start: 20180413, end: 20180413
  37. ONDANSETRON [Concomitant]
     Active Substance: ONDANSETRON
     Indication: Vomiting
     Dosage: 4 MILLIGRAM, SINGLE
     Route: 042
     Dates: start: 20180504, end: 20180504
  38. ONDANSETRON [Concomitant]
     Active Substance: ONDANSETRON
     Dosage: 4 MILLIGRAM, TID
     Route: 048
     Dates: start: 20180507, end: 20180514
  39. ONDANSETRON [Concomitant]
     Active Substance: ONDANSETRON
     Dosage: 4 MILLIGRAM, SINGLE
     Route: 042
     Dates: start: 20180531, end: 20180531
  40. ONDANSETRON [Concomitant]
     Active Substance: ONDANSETRON
     Dosage: 4 MILLIGRAM, SINGLE
     Route: 042
     Dates: start: 20180504, end: 20180505
  41. LIDOCAINE [Concomitant]
     Active Substance: LIDOCAINE
     Indication: Central venous catheterisation
     Dosage: 1 MILLILITER, SINGLE
     Route: 058
     Dates: start: 20180413, end: 20180413
  42. GABAPENTIN [Concomitant]
     Active Substance: GABAPENTIN
     Dosage: 300 MILLIGRAM, SINGLE
     Route: 048
     Dates: start: 20180413, end: 20180413
  43. BUPIVACAINE [Concomitant]
     Active Substance: BUPIVACAINE
     Indication: Anaesthesia
     Dosage: 1.25 MILLIGRAM, SINGLE
     Route: 008
     Dates: start: 20180413, end: 20180413
  44. MAGNESIUM SULFATE [Concomitant]
     Active Substance: MAGNESIUM SULFATE
     Indication: Blood magnesium decreased
     Dosage: 2 GRAM, SINGLE
     Route: 042
     Dates: start: 20180415, end: 20180415
  45. MAGNESIUM SULFATE [Concomitant]
     Active Substance: MAGNESIUM SULFATE
     Dosage: 2 GRAM, SINGLE
     Route: 042
     Dates: start: 20180416, end: 20180416
  46. POTASSIUM CHLORIDE [Concomitant]
     Active Substance: POTASSIUM CHLORIDE
     Indication: Blood potassium decreased
     Dosage: UNK
     Route: 042
     Dates: start: 20180416, end: 20180416
  47. OXYCODONE [Concomitant]
     Active Substance: OXYCODONE
     Indication: Analgesic therapy
     Dosage: 5 MILLIGRAM
     Route: 048
     Dates: start: 20180415, end: 20180422
  48. OXYCODONE [Concomitant]
     Active Substance: OXYCODONE
     Dosage: 5 MILLIGRAM
     Route: 048
     Dates: start: 20180507, end: 20180514
  49. OXYCODONE [Concomitant]
     Active Substance: OXYCODONE
     Dosage: 5 MILLIGRAM, BID
     Route: 048
     Dates: start: 20180730, end: 20180730
  50. OXYCODONE [Concomitant]
     Active Substance: OXYCODONE
     Dosage: 5 MILLILITER, BID
     Route: 048
     Dates: start: 20180730, end: 20180804
  51. OXYCODONE [Concomitant]
     Active Substance: OXYCODONE
     Dosage: 5 MILLILITER, BID
     Route: 048
     Dates: start: 20180730, end: 20180804
  52. CEPHALEXIN [Concomitant]
     Active Substance: CEPHALEXIN
     Indication: Infection prophylaxis
     Dosage: 500 MILLIGRAM, QID
     Route: 048
     Dates: start: 20180415, end: 20180422
  53. METRONIDAZOLE [Concomitant]
     Active Substance: METRONIDAZOLE
     Indication: Abdominal infection
     Dosage: 500 MILLIGRAM, SINGLE
     Route: 042
     Dates: start: 20180504, end: 20180504
  54. HYDROMORPHONE [Concomitant]
     Active Substance: HYDROMORPHONE
     Indication: Analgesic therapy
     Dosage: 1 MILLIGRAM, SINGLE
     Route: 042
     Dates: start: 20180504, end: 20180504
  55. HYDROMORPHONE [Concomitant]
     Active Substance: HYDROMORPHONE
     Dosage: 1 MILLIGRAM, SINGLE
     Route: 042
     Dates: start: 20180507, end: 20180507
  56. HYDROMORPHONE [Concomitant]
     Active Substance: HYDROMORPHONE
     Dosage: 0.5 MILLIGRAM, SINGLE
     Route: 042
     Dates: start: 20180507, end: 20180507
  57. HYDROMORPHONE [Concomitant]
     Active Substance: HYDROMORPHONE
     Dosage: 1 MILLIGRAM, SINGLE
     Route: 042
     Dates: start: 20180507, end: 20180507
  58. HYDROMORPHONE [Concomitant]
     Active Substance: HYDROMORPHONE
     Dosage: 0.5 MILLIGRAM, SINGLE
     Route: 042
     Dates: start: 20180507, end: 20180507
  59. HYDROMORPHONE [Concomitant]
     Active Substance: HYDROMORPHONE
     Dosage: 10 MICROGRAM
     Route: 008
     Dates: start: 20180413, end: 20180413
  60. CEFEPIME [Concomitant]
     Active Substance: CEFEPIME HYDROCHLORIDE
     Indication: Abdominal infection
     Dosage: 2 GRAM, SINGLE
     Route: 042
     Dates: start: 20180504, end: 20180504
  61. CYANOCOBALAMIN [Concomitant]
     Active Substance: CYANOCOBALAMIN
     Indication: Vitamin B12 deficiency
     Dosage: 1000 MICROGRAM, MONTHLY
     Route: 030
     Dates: start: 20180505, end: 20180505
  62. OXYBUTYNIN [Concomitant]
     Active Substance: OXYBUTYNIN
     Dosage: 5 MILLIGRAM, QID
     Route: 048
     Dates: start: 20180507, end: 20180521
  63. HEPARIN [Concomitant]
     Active Substance: HEPARIN SODIUM
     Dosage: 4000 INTERNATIONAL UNIT
     Route: 042
     Dates: start: 20180507, end: 20180507
  64. DIPHENHYDRAMINE [Concomitant]
     Active Substance: DIPHENHYDRAMINE
     Indication: Prophylaxis
     Dosage: 50 MILLIGRAM, SINGLE
     Route: 042
     Dates: start: 20180507, end: 20180507
  65. DIPHENHYDRAMINE [Concomitant]
     Active Substance: DIPHENHYDRAMINE
     Dosage: 25 MILLIGRAM, SINGLE
     Route: 048
     Dates: start: 20200205, end: 20200205
  66. DIPHENHYDRAMINE [Concomitant]
     Active Substance: DIPHENHYDRAMINE
     Dosage: 25 MILLIGRAM, SINGLE
     Route: 048
     Dates: start: 20200616, end: 20200616
  67. CIPROFLOXACIN [Concomitant]
     Active Substance: CIPROFLOXACIN
     Indication: Infection
     Dosage: 500 MILLIGRAM, BID
     Route: 048
     Dates: start: 20180507, end: 20180512
  68. BACITRACIN [Concomitant]
     Active Substance: BACITRACIN
     Indication: Skin infection
     Dosage: 500 INTERNATIONAL UNIT, TID
     Route: 061
     Dates: start: 20180507, end: 20180528
  69. ALTEPLASE [Concomitant]
     Active Substance: ALTEPLASE
     Dosage: 4 MILLIGRAM, SINGLE
     Route: 037
     Dates: start: 20180507, end: 20180507
  70. IRON SUCROSE [Concomitant]
     Active Substance: IRON SUCROSE
     Indication: Iron deficiency
     Dosage: 100 MILLIGRAM, SINGLE
     Route: 042
     Dates: start: 20180227, end: 20180227
  71. TPN [Concomitant]
     Active Substance: AMINO ACIDS\DEXTROSE\ELECTROLYTES NOS\SOYBEAN OIL
     Indication: Nutritional supplementation
     Dosage: 1080 MILLILITER
     Route: 042
     Dates: start: 20180415, end: 20180416
  72. ERGOCALCIFEROL [Concomitant]
     Active Substance: ERGOCALCIFEROL
     Indication: Vitamin D deficiency
     Dosage: 50000 INTERNATIONAL UNIT, 1/WEEK
     Route: 048
     Dates: start: 20191122, end: 20200710
  73. ERGOCALCIFEROL [Concomitant]
     Active Substance: ERGOCALCIFEROL
     Dosage: 50000 INTERNATIONAL UNIT
     Route: 048
     Dates: start: 20200710, end: 20201013
  74. ERGOCALCIFEROL [Concomitant]
     Active Substance: ERGOCALCIFEROL
     Dosage: 50000 INTERNATIONAL UNIT, 2/WEEK
     Route: 048
     Dates: start: 20201015, end: 20201019
  75. ERGOCALCIFEROL [Concomitant]
     Active Substance: ERGOCALCIFEROL
     Dosage: 50000 INTERNATIONAL UNIT
     Route: 048
     Dates: start: 20201019
  76. ENOXAPARIN [Concomitant]
     Active Substance: ENOXAPARIN
     Indication: Anticoagulant therapy
     Dosage: 80 MILLIGRAM, BID
     Route: 058
     Dates: start: 20200129
  77. INFED [Concomitant]
     Active Substance: IRON DEXTRAN
     Indication: Iron deficiency
     Dosage: 25 MILLIGRAM, SINGLE
     Route: 042
     Dates: start: 20200205, end: 20200205
  78. INFED [Concomitant]
     Active Substance: IRON DEXTRAN
     Dosage: 500 MILLIGRAM, SINGLE
     Route: 042
     Dates: start: 20200616, end: 20200616
  79. NORETHINDRONE [Concomitant]
     Active Substance: NORETHINDRONE
     Dosage: 5 MILLIGRAM, QD
     Route: 048
     Dates: start: 20200423
  80. ESTRADIOL [Concomitant]
     Active Substance: ESTRADIOL
     Indication: Menopause
     Dosage: 1 DOSAGE FORM, 2/WEEK
     Route: 062
     Dates: start: 20200528
  81. GLUCAGON [Concomitant]
     Active Substance: GLUCAGON
     Indication: Diabetes mellitus
     Dosage: 1 MILLIGRAM, SINGLE
     Route: 030
     Dates: start: 20200529, end: 20200529
  82. MULTIHANCE [Concomitant]
     Active Substance: GADOBENATE DIMEGLUMINE
     Dosage: 16 MILLILITER, SINGLE
     Route: 042
     Dates: start: 20200529, end: 20200529
  83. VANCOMYCIN [Concomitant]
     Active Substance: VANCOMYCIN
     Indication: Abdominal infection
     Dosage: 2000 MILLIGRAM
     Route: 042
     Dates: end: 20211123

REACTIONS (1)
  - Fistula [Recovering/Resolving]

NARRATIVE: CASE EVENT DATE: 20210310
